FAERS Safety Report 13226386 (Version 2)
Quarter: 2017Q1

REPORT INFORMATION
  Report Type: Spontaneous
  Country: US (occurrence: US)
  Receive Date: 20170213
  Receipt Date: 20170217
  Transmission Date: 20170428
  Serious: Yes (Other)
  Sender: FDA-Public Use
  Company Number: US-PFIZER INC-2017063537

PATIENT
  Age: 70 Year
  Sex: Female
  Weight: 81.65 kg

DRUGS (5)
  1. GABAPENTIN. [Suspect]
     Active Substance: GABAPENTIN
     Indication: FIBROMYALGIA
     Dosage: 800 MG, 3X/DAY
     Route: 048
  2. SYNTHROID [Concomitant]
     Active Substance: LEVOTHYROXINE SODIUM
     Indication: HYPOTHYROIDISM
     Dosage: 112MCG TABLET ONCE A DAY IN MORNING
  3. INSTAFLEX JOINT SUPPORT [Concomitant]
     Indication: ARTHRITIS
     Dosage: ONE CAPSULE A DAY IN MORNING
  4. DULOXETINE. [Concomitant]
     Active Substance: DULOXETINE
     Indication: SLEEP DISORDER
     Dosage: 60MG ONE AT NIGHT BEFORE BEDTIME
     Dates: start: 201611
  5. INSTAFLEX JOINT SUPPORT [Concomitant]
     Indication: ARTHRALGIA

REACTIONS (18)
  - Dizziness [Not Recovered/Not Resolved]
  - Feeling jittery [Not Recovered/Not Resolved]
  - Feeling abnormal [Unknown]
  - Limb discomfort [Recovering/Resolving]
  - Thinking abnormal [Unknown]
  - Mental disorder [Unknown]
  - Pain [Unknown]
  - Muscle disorder [Unknown]
  - Blood bilirubin increased [Unknown]
  - Agitation [Unknown]
  - Dysstasia [Unknown]
  - Stress [Unknown]
  - Panic attack [Unknown]
  - Fatigue [Unknown]
  - Musculoskeletal discomfort [Recovering/Resolving]
  - Drug ineffective for unapproved indication [Unknown]
  - Headache [Recovering/Resolving]
  - Sleep disorder [Unknown]

NARRATIVE: CASE EVENT DATE: 2016
